FAERS Safety Report 9759370 (Version 1)
Quarter: 2013Q4

REPORT INFORMATION
  Report Type: Spontaneous
  Country: US (occurrence: None)
  Receive Date: 20131216
  Receipt Date: 20131216
  Transmission Date: 20140711
  Serious: Yes (Other)
  Sender: FDA-Public Use
  Company Number: 163-21880-12041533(0)

PATIENT
  Age: 68 Year
  Sex: Male

DRUGS (2)
  1. REVLIMID (LENALIDOMIDE) (25 MILLIGRAM, CAPSULES) [Suspect]
     Indication: PLASMA CELL MYELOMA
     Dosage: 25 MG, QD X 14 DAYS Q 21 DAYS; QHS, PO ?25 MG, QD X 14 DAYS Q 21 DAYS; QHS, PO
  2. ALLOPURINOL [Suspect]
     Indication: GOUT
     Dosage: 300 MG, QD, PO

REACTIONS (3)
  - Rash erythematous [None]
  - Rash macular [None]
  - Rash papular [None]
